FAERS Safety Report 9986653 (Version 1)
Quarter: 2014Q1

REPORT INFORMATION
  Report Type: Spontaneous
  Country: US (occurrence: US)
  Receive Date: 20140307
  Receipt Date: 20140307
  Transmission Date: 20141002
  Serious: No
  Sender: FDA-Public Use
  Company Number: US-ABBVIE-13P-163-1083340-00

PATIENT
  Age: 75 Year
  Sex: Female

DRUGS (5)
  1. HUMIRA [Suspect]
     Indication: PSORIASIS
     Dates: start: 2005, end: 201212
  2. HUMIRA [Suspect]
     Indication: PSORIATIC ARTHROPATHY
     Dates: start: 201302
  3. HUMIRA [Suspect]
     Dates: start: 201302
  4. FLUOCINONIDE [Concomitant]
     Indication: PSORIASIS
     Route: 061
  5. CALCIPOTRIENE [Concomitant]
     Indication: PSORIASIS
     Route: 061

REACTIONS (5)
  - Diarrhoea [Recovered/Resolved]
  - Staphylococcal infection [Recovered/Resolved]
  - Psoriasis [Recovered/Resolved]
  - Staphylococcal infection [Recovered/Resolved]
  - Impaired healing [Not Recovered/Not Resolved]
